FAERS Safety Report 24176073 (Version 2)
Quarter: 2025Q1

REPORT INFORMATION
  Report Type: Spontaneous
  Country: US (occurrence: US)
  Receive Date: 20240806
  Receipt Date: 20250130
  Transmission Date: 20250408
  Serious: No
  Sender: SANOFI AVENTIS
  Company Number: US-SA-SAC20240801000255

PATIENT
  Age: 54 Year
  Sex: Male
  Weight: 81 kg

DRUGS (1)
  1. DUPIXENT [Suspect]
     Active Substance: DUPILUMAB
     Indication: Eosinophilic oesophagitis
     Dosage: 300 MG, QW
     Route: 058
     Dates: start: 20240719

REACTIONS (5)
  - Pain in extremity [Unknown]
  - Sciatica [Unknown]
  - Dysphagia [Not Recovered/Not Resolved]
  - Back pain [Unknown]
  - Myalgia [Unknown]
